FAERS Safety Report 15717206 (Version 1)
Quarter: 2018Q4

REPORT INFORMATION
  Report Type: Spontaneous
  Country: FR (occurrence: FR)
  Receive Date: 20181213
  Receipt Date: 20181213
  Transmission Date: 20190205
  Serious: Yes (Hospitalization)
  Sender: FDA-Public Use
  Company Number: FR-SUN PHARMACEUTICAL INDUSTRIES LTD-2018RR-193435

PATIENT
  Age: 90 Year
  Sex: Male

DRUGS (3)
  1. AZITHROMYCIN ANHYDROUS. [Suspect]
     Active Substance: AZITHROMYCIN ANHYDROUS
     Indication: LUNG INFECTION
     Dosage: UNK
     Route: 048
     Dates: start: 20111103, end: 20111220
  2. SOLUPRED (PREDNISOLONE/METASULFOBENZOATE SODIUM) [Suspect]
     Active Substance: PREDNISOLONE SODIUM METAZOATE
     Indication: LUNG INFECTION
     Dosage: UNK
     Route: 048
     Dates: start: 20111103, end: 20111221
  3. EXTOVYL, GELULE [Suspect]
     Active Substance: BETAHISTINE MESILATE
     Indication: DIZZINESS
     Dosage: UNK
     Route: 048
     Dates: start: 20111110, end: 20111220

REACTIONS (2)
  - Eosinophilia [Recovering/Resolving]
  - Rash maculo-papular [Recovering/Resolving]

NARRATIVE: CASE EVENT DATE: 20111220
